FAERS Safety Report 6028000-9 (Version None)
Quarter: 2008Q4

REPORT INFORMATION
  Report Type: 
  Country: None (occurrence: None)
  Receive Date: 20081230
  Receipt Date: 20081217
  Transmission Date: 20090506
  Serious: Yes (Hospitalization, Other)
  Sender: FDA-Public Use
  Company Number: 2008CH004206

PATIENT
  Age: 61 Year
  Sex: Female

DRUGS (5)
  1. ALOXI [Suspect]
     Indication: PROPHYLAXIS OF NAUSEA AND VOMITING
     Dosage: 0.25 MG, SINGLE, IV DRIP
     Route: 041
  2. 5-FU/00098801/(FLUOROURACIL) [Concomitant]
  3. EPIRUBICIN [Concomitant]
  4. CYCLOPHOSPHAMIDE [Concomitant]
  5. TAXOTERE [Concomitant]

REACTIONS (5)
  - EPILEPSY [None]
  - HYPERSENSITIVITY [None]
  - HYPOXIA [None]
  - STRESS [None]
  - SYNCOPE [None]
